FAERS Safety Report 8617278-0 (Version None)
Quarter: 2012Q3

REPORT INFORMATION
  Report Type: 
  Country: None (occurrence: None)
  Receive Date: 20120823
  Receipt Date: 20120810
  Transmission Date: 20120928
  Serious: Yes (Life-Threatening, Hospitalization, Congenital Anomaly, Other)
  Sender: FDA-Public Use
  Company Number: DE-MYLANLABS-2012S1016495

PATIENT
  Age: 0 Year
  Sex: Male
  Weight: 2.41 kg

DRUGS (4)
  1. FOLIC ACID [Concomitant]
     Indication: PROPHYLAXIS OF NEURAL TUBE DEFECT
     Route: 064
     Dates: start: 20110829, end: 20120405
  2. NEBIVOLOL HCL [Suspect]
     Indication: HYPERTENSION
     Dosage: 50 [MG/D ]
     Route: 064
  3. LEVOTHYROXINE SODIUM [Concomitant]
     Route: 064
  4. RAMIPRIL [Suspect]
     Dosage: 5 [MG/D ]/ UNTIL WEEK 12-14 ONLY 2.5 MG/D, THEN ELEVATION TO 5 MG/D
     Route: 064

REACTIONS (7)
  - RENAL APLASIA [None]
  - NEONATAL ANURIA [None]
  - EXTREMITY CONTRACTURE [None]
  - CRANIAL SUTURES WIDENING [None]
  - RENAL FAILURE ACUTE [None]
  - SMALL FOR DATES BABY [None]
  - MATERNAL EXPOSURE DURING PREGNANCY [None]
